FAERS Safety Report 15716867 (Version 1)
Quarter: 2018Q4

REPORT INFORMATION
  Report Type: Report from Study
  Country: JP (occurrence: JP)
  Receive Date: 20181213
  Receipt Date: 20181213
  Transmission Date: 20190205
  Serious: Yes (Other)
  Sender: FDA-Public Use
  Company Number: JP-ROCHE-2227085

PATIENT
  Age: 76 Year
  Sex: Male

DRUGS (1)
  1. RITUXIMAB. [Suspect]
     Active Substance: RITUXIMAB
     Indication: DIFFUSE LARGE B-CELL LYMPHOMA
     Dosage: ON DAY 1 OF EACH 21-DAY CYCLE FOR 8 CYCLES?LAST DOSE RECEIVED PRIOR TO SERIOUS ADVERSE EVENT ON 16/J
     Route: 042
     Dates: start: 20130821

REACTIONS (1)
  - Gastric cancer [Unknown]

NARRATIVE: CASE EVENT DATE: 20181206
